FAERS Safety Report 6859752-3 (Version None)
Quarter: 2010Q3

REPORT INFORMATION
  Report Type: 
  Country: None (occurrence: None)
  Receive Date: 20100720
  Receipt Date: 20100707
  Transmission Date: 20110219
  Serious: Yes (Other)
  Sender: FDA-Public Use
  Company Number: US-CELGENEUS-163-21880-10070487

PATIENT
  Sex: Male

DRUGS (3)
  1. REVLIMID [Suspect]
     Indication: MYELOFIBROSIS
     Route: 048
     Dates: start: 20100101, end: 20100601
  2. REVLIMID [Suspect]
     Route: 048
     Dates: start: 20091201
  3. REVLIMID [Suspect]
     Route: 048
     Dates: start: 20091101

REACTIONS (2)
  - RASH [None]
  - SKIN CANCER [None]
